FAERS Safety Report 6172256-9 (Version None)
Quarter: 2009Q2

REPORT INFORMATION
  Report Type: 
  Country: None (occurrence: None)
  Receive Date: 20090429
  Receipt Date: 20090424
  Transmission Date: 20091009
  Serious: No
  Sender: FDA-Public Use
  Company Number: US-JNJFOC-20090406636

PATIENT
  Sex: Female
  Weight: 68.04 kg

DRUGS (4)
  1. DURAGESIC-100 [Suspect]
     Indication: KNEE OPERATION
     Route: 062
  2. DURAGESIC-100 [Suspect]
     Indication: SURGERY
     Route: 062
  3. DURAGESIC-100 [Suspect]
     Indication: POLIOMYELITIS
     Route: 062
  4. UNSPECIFIED MEDICATION [Concomitant]

REACTIONS (1)
  - WRONG TECHNIQUE IN DRUG USAGE PROCESS [None]
